FAERS Safety Report 6855138-6 (Version None)
Quarter: 2010Q3

REPORT INFORMATION
  Report Type: 
  Country: None (occurrence: None)
  Receive Date: 20100717
  Receipt Date: 20090407
  Transmission Date: 20110219
  Serious: Yes (Other)
  Sender: FDA-Public Use
  Company Number: US-PFIZER INC-2008003808

PATIENT
  Sex: Female

DRUGS (3)
  1. CHANTIX [Suspect]
     Dosage: UNK
  2. EFFEXOR [Concomitant]
     Indication: MAJOR DEPRESSION
     Dosage: UNK
  3. ALL OTHER THERAPEUTIC PRODUCTS [Concomitant]
     Dosage: UNK

REACTIONS (5)
  - CRYING [None]
  - DEPRESSION [None]
  - HEADACHE [None]
  - INHIBITORY DRUG INTERACTION [None]
  - MOOD SWINGS [None]
